FAERS Safety Report 5448922-7 (Version None)
Quarter: 2007Q3

REPORT INFORMATION
  Report Type: 
  Country: None (occurrence: None)
  Receive Date: 20070906
  Receipt Date: 20070822
  Transmission Date: 20080115
  Serious: Yes (Death)
  Sender: FDA-Public Use
  Company Number: M7002-00006-CLI-US

PATIENT
  Age: 66 Year
  Sex: Female
  Weight: 61 kg

DRUGS (8)
  1. ONTAK [Suspect]
     Indication: PERIPHERAL T-CELL LYMPHOMA UNSPECIFIED
     Dosage: 1053 MCG, 2 IN 21 D, INTRAVENOUS
     Route: 042
     Dates: start: 20070730, end: 20070731
  2. VINCRISTINE SULFATE [Concomitant]
  3. DOXORUBIVIN (DOXORUBICIN) [Concomitant]
  4. CYTOXAN [Concomitant]
  5. PREDNISONE TAB [Concomitant]
  6. LIPITOR [Concomitant]
  7. LISINOPRIL [Concomitant]
  8. HYDROCHLOROTHIAZDE (HYDROCHLOROTHIAZIDE) [Concomitant]

REACTIONS (15)
  - ACUTE MYOCARDIAL INFARCTION [None]
  - BLOOD LACTIC ACID INCREASED [None]
  - BRADYCARDIA [None]
  - CAPILLARY LEAK SYNDROME [None]
  - CARDIAC ARREST [None]
  - ELECTROMECHANICAL DISSOCIATION [None]
  - HAEMOLYSIS [None]
  - HYPOTENSION [None]
  - LYMPHOCYTE PERCENTAGE DECREASED [None]
  - MYOGLOBIN URINE PRESENT [None]
  - NEUTROPHIL PERCENTAGE INCREASED [None]
  - RHABDOMYOLYSIS [None]
  - TUMOUR LYSIS SYNDROME [None]
  - VENTRICULAR FIBRILLATION [None]
  - WHITE BLOOD CELL COUNT INCREASED [None]
